FAERS Safety Report 4931496-4 (Version None)
Quarter: 2006Q1

REPORT INFORMATION
  Report Type: 
  Country: None (occurrence: None)
  Receive Date: 20060303
  Receipt Date: 20060217
  Transmission Date: 20060701
  Serious: No
  Sender: FDA-Public Use
  Company Number: GB-RB-2799-2006

PATIENT
  Sex: Male

DRUGS (3)
  1. BUPRENORPHINE HCL [Suspect]
     Indication: DRUG USE FOR UNKNOWN INDICATION
     Route: 065
  2. BUPRENORPHINE HCL [Suspect]
     Route: 065
  3. INSULIN [Concomitant]
     Indication: DIABETES MELLITUS
     Dosage: DOSAGE UNKNOWN
     Route: 065
     Dates: start: 20060125

REACTIONS (2)
  - HEADACHE [None]
  - RASH MACULAR [None]
